FAERS Safety Report 18159594 (Version 2)
Quarter: 2020Q4

REPORT INFORMATION
  Report Type: Spontaneous
  Country: US (occurrence: US)
  Receive Date: 20200818
  Receipt Date: 20201214
  Transmission Date: 20210113
  Serious: No
  Sender: FDA-Public Use
  Company Number: US-SA-2020SA206957

PATIENT

DRUGS (2)
  1. TOUJEO [Suspect]
     Active Substance: INSULIN GLARGINE
     Indication: TYPE 2 DIABETES MELLITUS
     Dosage: 80 IU, QD  IN THE MORNING
     Route: 065
  2. HUMALOG [Concomitant]
     Active Substance: INSULIN LISPRO
     Dosage: WITH MEALS
     Route: 065

REACTIONS (7)
  - Visual impairment [Unknown]
  - Hypoacusis [Unknown]
  - Blood glucose increased [Unknown]
  - Otosclerosis [Unknown]
  - Device issue [Unknown]
  - Product storage error [Unknown]
  - Product dose omission issue [Unknown]
